FAERS Safety Report 11910667 (Version 1)
Quarter: 2016Q1

REPORT INFORMATION
  Report Type: Spontaneous
  Country: US (occurrence: None)
  Receive Date: 20160111
  Receipt Date: 20160111
  Transmission Date: 20160526
  Serious: Yes (Death)
  Sender: FDA-Public Use
  Company Number: None

PATIENT
  Age: 69 Year
  Sex: Male
  Weight: 79 kg

DRUGS (1)
  1. PRADAXA [Suspect]
     Active Substance: DABIGATRAN ETEXILATE MESYLATE
     Indication: ATRIAL FIBRILLATION
     Dosage: 1 TABLET BID ORAL
     Route: 048

REACTIONS (7)
  - Coagulopathy [None]
  - Haematoma [None]
  - Haemorrhage [None]
  - Anaemia [None]
  - Shock haemorrhagic [None]
  - Vascular pseudoaneurysm [None]
  - Hypotension [None]

NARRATIVE: CASE EVENT DATE: 20151111
